FAERS Safety Report 10019021 (Version 1)
Quarter: 2014Q1

REPORT INFORMATION
  Report Type: Spontaneous
  Country: US (occurrence: None)
  Receive Date: 20140314
  Receipt Date: 20140314
  Transmission Date: 20141002
  Serious: Yes (Hospitalization)
  Sender: FDA-Public Use
  Company Number: None

PATIENT
  Age: 1 Year
  Sex: Male
  Weight: 10.7 kg

DRUGS (1)
  1. VINBLASTINE [Suspect]
     Indication: ASTROCYTOMA
     Dosage: VINBLASTINE 2.5MG WEEKLY IVP
     Dates: start: 20131007, end: 20131209

REACTIONS (4)
  - Abdominal pain [None]
  - Constipation [None]
  - Intestinal obstruction [None]
  - Alopecia [None]
